FAERS Safety Report 7443058-8 (Version None)
Quarter: 2011Q2

REPORT INFORMATION
  Report Type: 
  Country: None (occurrence: None)
  Receive Date: 20110428
  Receipt Date: 20100819
  Transmission Date: 20111010
  Serious: No
  Sender: FDA-Public Use
  Company Number: US-MYLANLABS-2010S1015161

PATIENT
  Age: 61 Year
  Sex: Female
  Weight: 136.08 kg

DRUGS (10)
  1. LORTAB [Concomitant]
     Indication: PAIN
  2. DICLOFENAC [Concomitant]
     Indication: ARTHRITIS
  3. XANAX [Concomitant]
     Indication: ANXIETY
  4. IPRATROPIUM BROMIDE AND ALBUTEROL SULFATE [Suspect]
     Indication: CHRONIC OBSTRUCTIVE PULMONARY DISEASE
     Route: 055
     Dates: start: 20100701
  5. BENICAR [Concomitant]
     Indication: HYPERTENSION
     Dosage: 40MG/12.5MG
  6. IPRATROPIUM BROMIDE AND ALBUTEROL SULFATE [Suspect]
  7. INSULIN [Concomitant]
     Indication: DIABETES MELLITUS
  8. ARFORMOTEROL TARTRATE [Suspect]
     Indication: CHRONIC OBSTRUCTIVE PULMONARY DISEASE
     Route: 055
     Dates: start: 20100701
  9. LIDODERM [Concomitant]
     Indication: PAIN
     Route: 062
  10. BUDESONIDE [Suspect]
     Indication: CHRONIC OBSTRUCTIVE PULMONARY DISEASE
     Route: 055
     Dates: start: 20100701

REACTIONS (1)
  - OEDEMA PERIPHERAL [None]
